FAERS Safety Report 24524852 (Version 1)
Quarter: 2024Q4

REPORT INFORMATION
  Report Type: Spontaneous
  Country: FR (occurrence: FR)
  Receive Date: 20241019
  Receipt Date: 20241019
  Transmission Date: 20250114
  Serious: Yes (Hospitalization)
  Sender: CELLTRION
  Company Number: None

PATIENT

DRUGS (10)
  1. INFLIXIMAB [Suspect]
     Active Substance: INFLIXIMAB
     Indication: Rheumatoid arthritis
     Dosage: 228 MG, 1 TOTAL
     Route: 042
     Dates: start: 20240320, end: 20240320
  2. INFLIXIMAB [Suspect]
     Active Substance: INFLIXIMAB
     Dosage: 231 MG, 1 TOTAL
     Route: 042
     Dates: start: 20240209, end: 20240209
  3. ERELZI [Suspect]
     Active Substance: ETANERCEPT-SZZS
     Indication: Product used for unknown indication
  4. KETOPROFEN [Concomitant]
     Active Substance: KETOPROFEN
  5. HYDROCHLOROTHIAZIDE [Concomitant]
     Active Substance: HYDROCHLOROTHIAZIDE
  6. ARAVA [Concomitant]
     Active Substance: LEFLUNOMIDE
  7. PRISTINAMYCIN [Concomitant]
     Active Substance: PRISTINAMYCIN
  8. TELMISARTAN [Concomitant]
     Active Substance: TELMISARTAN
  9. PIROXICAM [Concomitant]
     Active Substance: PIROXICAM
  10. EZETIMIBE [Concomitant]
     Active Substance: EZETIMIBE

REACTIONS (2)
  - Photosensitivity reaction [Recovering/Resolving]
  - Underdose [Unknown]

NARRATIVE: CASE EVENT DATE: 20240312
